FAERS Safety Report 7599631-X (Version None)
Quarter: 2011Q2

REPORT INFORMATION
  Report Type: 
  Country: None (occurrence: None)
  Receive Date: 20110623
  Receipt Date: 20110607
  Transmission Date: 20111010
  Serious: Yes (Hospitalization)
  Sender: FDA-Public Use
  Company Number: 2011PROUSA00364

PATIENT
  Age: 55 Year
  Sex: Male

DRUGS (5)
  1. PROVENGE [Suspect]
     Indication: PROSTATE CANCER METASTATIC
     Dates: start: 20110519, end: 20110519
  2. PROVENGE [Suspect]
     Indication: PROSTATE CANCER METASTATIC
     Dates: start: 20110603, end: 20110603
  3. PROVENGE [Suspect]
     Indication: PROSTATE CANCER METASTATIC
     Dosage: 250 ML, SINGLE, INTRAVENOUS 250 ML, SINGLE, INTRAVENOUS 125 ML, SINGLE INTRAVENOUS
     Route: 042
     Dates: start: 20110505, end: 20110505
  4. PROVENGE [Suspect]
     Indication: PROSTATE CANCER METASTATIC
     Dosage: 250 ML, SINGLE, INTRAVENOUS 250 ML, SINGLE, INTRAVENOUS 125 ML, SINGLE INTRAVENOUS
     Route: 042
     Dates: start: 20110519, end: 20110519
  5. PROVENGE [Suspect]
     Indication: PROSTATE CANCER METASTATIC
     Dosage: 250 ML, SINGLE, INTRAVENOUS 250 ML, SINGLE, INTRAVENOUS 125 ML, SINGLE INTRAVENOUS
     Route: 042
     Dates: start: 20110603, end: 20110603

REACTIONS (3)
  - PAIN IN EXTREMITY [None]
  - DEEP VEIN THROMBOSIS [None]
  - INFUSION RELATED REACTION [None]
